FAERS Safety Report 6094196-6 (Version None)
Quarter: 2009Q1

REPORT INFORMATION
  Report Type: 
  Country: None (occurrence: None)
  Receive Date: 20090224
  Receipt Date: 20090224
  Transmission Date: 20090719
  Serious: Yes (Other)
  Sender: FDA-Public Use
  Company Number: None

PATIENT
  Age: 41 Year
  Sex: Female
  Weight: 63.5036 kg

DRUGS (1)
  1. NITROFURANTIN 100MG MYLAN [Suspect]
     Indication: URINARY TRACT INFECTION
     Dosage: ONE CAPSULE TWICE DAILY PO
     Route: 048
     Dates: start: 20090213, end: 20090221

REACTIONS (3)
  - ABDOMINAL PAIN UPPER [None]
  - DIARRHOEA [None]
  - URTICARIA [None]
